FAERS Safety Report 5098050-8 (Version None)
Quarter: 2006Q3

REPORT INFORMATION
  Report Type: 
  Country: None (occurrence: None)
  Receive Date: 20060906
  Receipt Date: 20060330
  Transmission Date: 20061208
  Serious: No
  Sender: FDA-Public Use
  Company Number: US-GLAXOSMITHKLINE-A0599765A

PATIENT
  Sex: Female

DRUGS (1)
  1. REQUIP [Suspect]
     Indication: DRUG USE FOR UNKNOWN INDICATION
     Route: 048

REACTIONS (7)
  - CHEILITIS [None]
  - DYSPHAGIA [None]
  - MUSCULAR WEAKNESS [None]
  - MYALGIA [None]
  - ORAL PAIN [None]
  - PYREXIA [None]
  - RASH ERYTHEMATOUS [None]
